FAERS Safety Report 15862893 (Version 1)
Quarter: 2018Q4

REPORT INFORMATION
  Report Type: Spontaneous
  Country: US (occurrence: US)
  Receive Date: 20181231
  Receipt Date: 20181231
  Transmission Date: 20190205
  Serious: Yes (Life-Threatening, Hospitalization)
  Sender: FDA-Public Use
  Company Number: None

PATIENT
  Age: 33 Year
  Sex: Female
  Weight: 74.9 kg

DRUGS (1)
  1. MIRCERA [Suspect]
     Active Substance: METHOXY POLYETHYLENE GLYCOL-EPOETIN BETA
     Indication: ANAEMIA
     Dosage: ?          OTHER FREQUENCY:EVERY 4 WEEKS;OTHER ROUTE:INTRA VENOUS PUSH?
     Route: 042
     Dates: start: 20180211, end: 20180222

REACTIONS (4)
  - Chest discomfort [None]
  - Throat tightness [None]
  - Anxiety [None]
  - Dyskinesia [None]

NARRATIVE: CASE EVENT DATE: 20180222
